FAERS Safety Report 4828565-6 (Version None)
Quarter: 2005Q4

REPORT INFORMATION
  Report Type: 
  Country: None (occurrence: None)
  Receive Date: 20051110
  Receipt Date: 20051031
  Transmission Date: 20060501
  Serious: Yes (Hospitalization)
  Sender: FDA-Public Use
  Company Number: 2005AL004467

PATIENT
  Age: 53 Year

DRUGS (6)
  1. SERAX [Suspect]
     Dosage: SEE IMAGE
     Route: 048
     Dates: start: 20050629, end: 20050705
  2. SERAX [Suspect]
     Dosage: SEE IMAGE
     Route: 048
     Dates: start: 20050706, end: 20050713
  3. SERAX [Suspect]
     Dosage: SEE IMAGE
     Route: 048
     Dates: start: 20050714, end: 20050717
  4. SERAX [Suspect]
     Dosage: SEE IMAGE
     Route: 048
     Dates: start: 20050718
  5. LEPONEX ^NOVARTIS^ ({NULL}) [Suspect]
     Dosage: 75 MG; QD; PO
     Route: 048
     Dates: start: 20050503, end: 20050717
  6. VENLAFAXINE HYDROCHLORIDE [Suspect]
     Dosage: 300 MG; QD
     Dates: start: 20050509

REACTIONS (5)
  - ALANINE AMINOTRANSFERASE INCREASED [None]
  - ASPARTATE AMINOTRANSFERASE INCREASED [None]
  - GAMMA-GLUTAMYLTRANSFERASE INCREASED [None]
  - HYPERCHOLESTEROLAEMIA [None]
  - HYPERTRIGLYCERIDAEMIA [None]
